FAERS Safety Report 5510755-0 (Version None)
Quarter: 2007Q4

REPORT INFORMATION
  Report Type: 
  Country: None (occurrence: None)
  Receive Date: 20071108
  Receipt Date: 20071105
  Transmission Date: 20080405
  Serious: Yes (Hospitalization)
  Sender: FDA-Public Use
  Company Number: B0491331A

PATIENT
  Age: 65 Year
  Sex: Male
  Weight: 51 kg

DRUGS (7)
  1. ARIXTRA [Suspect]
     Indication: THROMBOSIS PROPHYLAXIS
     Dosage: 2.5MG PER DAY
     Route: 058
     Dates: start: 20071005, end: 20071010
  2. ALLOPURINOL [Concomitant]
     Dosage: 200MG PER DAY
     Route: 048
     Dates: start: 20071005
  3. FERROMIA [Concomitant]
     Dosage: 50MG PER DAY
     Route: 048
     Dates: start: 20071005
  4. LOXONIN [Concomitant]
     Indication: OSTEONECROSIS
     Dosage: 180MG PER DAY
     Route: 048
     Dates: start: 20071005
  5. SELBEX [Concomitant]
     Indication: GASTRITIS
     Dosage: 150MG PER DAY
     Route: 048
     Dates: start: 20071005
  6. DEPAS [Concomitant]
     Indication: ANXIETY
     Dosage: .5MG PER DAY
     Route: 048
     Dates: start: 20071005
  7. FLUMARIN [Concomitant]
     Indication: OSTEONECROSIS
     Dosage: 2G PER DAY
     Route: 042
     Dates: start: 20071005, end: 20071006

REACTIONS (7)
  - ANAEMIA [None]
  - ARTHRALGIA [None]
  - HAEMOGLOBIN DECREASED [None]
  - INDURATION [None]
  - PLATELET COUNT DECREASED [None]
  - POST PROCEDURAL HAEMATOMA [None]
  - WOUND COMPLICATION [None]
